FAERS Safety Report 19789141 (Version 1)
Quarter: 2021Q3

REPORT INFORMATION
  Report Type: Spontaneous
  Country: NO (occurrence: NO)
  Receive Date: 20210904
  Receipt Date: 20210904
  Transmission Date: 20211014
  Serious: Yes (Death, Hospitalization)
  Sender: FDA-Public Use
  Company Number: NO-ACCORD-237355

PATIENT
  Age: 57 Year
  Sex: Male
  Weight: 88 kg

DRUGS (9)
  1. LAXOBERAL [Concomitant]
     Active Substance: SODIUM PICOSULFATE
     Indication: CONSTIPATION
     Dosage: AS NEEDED
     Route: 048
  2. ONDANSETRON BLUEFISH [Concomitant]
     Indication: NAUSEA
     Dosage: STRENGTH: 8 MG MILLIGRAM(S), 8 MG UP TO TWO TIMES PER DAY AS NEEDED
     Route: 048
  3. MOVICOL [Concomitant]
     Active Substance: POLYETHYLENE GLYCOL 3350\POTASSIUM CHLORIDE\SODIUM BICARBONATE\SODIUM CHLORIDE
     Indication: CONSTIPATION
     Dosage: STRENGTH: 13.125 MG,  46.6 MG, 178.5 MG, 350.7 MG
     Route: 048
  4. DEXAMETHASONE ABCUR [Concomitant]
     Indication: PREMEDICATION
     Dosage: STRENGTH: 4 MG MILLIGRAM (S)
     Route: 048
  5. PANTOPRAZOLE [Concomitant]
     Active Substance: PANTOPRAZOLE
     Indication: GASTROOESOPHAGEAL REFLUX DISEASE
  6. PARACETAMOL [Concomitant]
     Active Substance: ACETAMINOPHEN
     Indication: PAIN
     Dosage: STRENGTH: 1000 MG MILLIGRAM(S), AS NEEDED
     Route: 048
  7. AFIPRAN [Concomitant]
     Active Substance: METOCLOPRAMIDE HYDROCHLORIDE
     Indication: NAUSEA
     Dosage: STRENGTH:10 MG MILLIGRAM(S), AS NEEDED
     Route: 048
  8. OXALIPLATIN. [Concomitant]
     Active Substance: OXALIPLATIN
     Indication: ADJUVANT THERAPY
     Route: 042
     Dates: start: 20210302, end: 20210302
  9. CAPECITABINE ACCORD [Suspect]
     Active Substance: CAPECITABINE
     Indication: ADJUVANT THERAPY
     Dosage: STRENGTH: 500 MG MILLIGRAM(S), PLANNED TREATMENT FOR 14 DAYS
     Route: 048
     Dates: start: 20210302, end: 20210310

REACTIONS (11)
  - Platelet count decreased [Fatal]
  - Enteritis [Fatal]
  - Gastrointestinal toxicity [Fatal]
  - Pulmonary oedema [Fatal]
  - Neutrophil count decreased [Fatal]
  - Vomiting [Not Recovered/Not Resolved]
  - Multiple organ dysfunction syndrome [Fatal]
  - Nausea [Not Recovered/Not Resolved]
  - Infection [Fatal]
  - General physical health deterioration [Not Recovered/Not Resolved]
  - Diarrhoea [Not Recovered/Not Resolved]

NARRATIVE: CASE EVENT DATE: 202103
